FAERS Safety Report 15392393 (Version 2)
Quarter: 2018Q4

REPORT INFORMATION
  Report Type: Spontaneous
  Country: US (occurrence: US)
  Receive Date: 20180917
  Receipt Date: 20181012
  Transmission Date: 20190204
  Serious: Yes (Hospitalization, Other)
  Sender: FDA-Public Use
  Company Number: US-GILEAD-2018-0362748

PATIENT
  Age: 64 Year
  Sex: Male
  Weight: 82.9 kg

DRUGS (3)
  1. CYTOXAN [Suspect]
     Active Substance: CYCLOPHOSPHAMIDE
     Indication: CHEMOTHERAPY
     Dosage: UNK
     Route: 065
     Dates: start: 20180404
  2. YESCARTA [Suspect]
     Active Substance: AXICABTAGENE CILOLEUCEL
     Indication: B-CELL LYMPHOMA
     Dosage: 2X10^8, SINGLE
     Route: 042
     Dates: start: 20180409, end: 20180409
  3. FLUDARABINE [Suspect]
     Active Substance: FLUDARABINE PHOSPHATE
     Indication: CHEMOTHERAPY
     Dosage: UNK
     Route: 065
     Dates: start: 20180404

REACTIONS (6)
  - Hypogammaglobulinaemia [Recovered/Resolved]
  - Cytokine release syndrome [Recovered/Resolved]
  - Bacteraemia [Unknown]
  - Stomatococcal infection [Unknown]
  - Streptococcal infection [Unknown]
  - Neurotoxicity [Recovered/Resolved]

NARRATIVE: CASE EVENT DATE: 20180410
